FAERS Safety Report 21396331 (Version 3)
Quarter: 2022Q4

REPORT INFORMATION
  Report Type: Spontaneous
  Country: US (occurrence: US)
  Receive Date: 20220930
  Receipt Date: 20221118
  Transmission Date: 20230112
  Serious: Yes (Hospitalization)
  Sender: FDA-Public Use
  Company Number: US-LEO Pharma-345777

PATIENT
  Sex: Female

DRUGS (4)
  1. DEVICE [Suspect]
     Active Substance: DEVICE
     Indication: Product used for unknown indication
  2. ADBRY [Suspect]
     Active Substance: TRALOKINUMAB-LDRM
     Indication: Product used for unknown indication
     Dosage: 4 INJECTIONS FOR THE INITIAL DOSE
     Route: 058
     Dates: start: 20220808
  3. ADBRY [Suspect]
     Active Substance: TRALOKINUMAB-LDRM
     Indication: Product used for unknown indication
     Dosage: 4 INJECTIONS FOR THE INITIAL DOSE
     Route: 058
     Dates: start: 20220808
  4. ADBRY [Suspect]
     Active Substance: TRALOKINUMAB-LDRM
     Indication: Product used for unknown indication
     Dosage: 4 INJECTIONS FOR THE INITIAL DOSE
     Route: 058
     Dates: start: 20220808

REACTIONS (9)
  - Dizziness [Unknown]
  - Eyelids pruritus [Recovered/Resolved]
  - Post-acute COVID-19 syndrome [Unknown]
  - Dyspnoea [Unknown]
  - Dyspnoea [Unknown]
  - Dizziness [Unknown]
  - Eyelids pruritus [Recovered/Resolved]
  - Asthenia [Unknown]
  - Asthenia [Unknown]

NARRATIVE: CASE EVENT DATE: 20220901
